FAERS Safety Report 12853407 (Version 1)
Quarter: 2016Q4

REPORT INFORMATION
  Report Type: Spontaneous
  Country: US (occurrence: US)
  Receive Date: 20161017
  Receipt Date: 20161017
  Transmission Date: 20170207
  Serious: No
  Sender: FDA-Public Use
  Company Number: US-WATSON-2016-04194

PATIENT
  Age: 76 Year
  Sex: Male

DRUGS (3)
  1. WARFARIN [Concomitant]
     Active Substance: WARFARIN
     Indication: PRODUCT USED FOR UNKNOWN INDICATION
     Dosage: UNK, UNKNOWN
     Route: 065
  2. ALLOPURINOL (WATSON LABORATORIES) [Suspect]
     Active Substance: ALLOPURINOL
     Indication: GOUT
     Dosage: 300 MG, DAILY
     Route: 048
     Dates: start: 201512
  3. BABY ASPIRIN [Concomitant]
     Active Substance: ASPIRIN
     Indication: PRODUCT USED FOR UNKNOWN INDICATION
     Dosage: UNK, UNKNOWN
     Route: 065

REACTIONS (1)
  - Nipple pain [Not Recovered/Not Resolved]

NARRATIVE: CASE EVENT DATE: 201601
